FAERS Safety Report 25380183 (Version 1)
Quarter: 2025Q2

REPORT INFORMATION
  Report Type: Spontaneous
  Country: US (occurrence: US)
  Receive Date: 20250530
  Receipt Date: 20250530
  Transmission Date: 20250716
  Serious: Yes (Other)
  Sender: COOPERSURGICAL
  Company Number: US-COOPERSURGICAL, INC.-2025CPS004203

PATIENT
  Age: 26 Year
  Sex: Female
  Weight: 50.794 kg

DRUGS (1)
  1. PARAGARD T 380A [Suspect]
     Active Substance: COPPER
     Indication: Contraception
     Route: 015
     Dates: start: 20250312, end: 20250514

REACTIONS (3)
  - Ovarian cyst [Unknown]
  - Embedded device [Recovered/Resolved]
  - Device issue [Recovered/Resolved]

NARRATIVE: CASE EVENT DATE: 20250416
